FAERS Safety Report 13514686 (Version 4)
Quarter: 2025Q4

REPORT INFORMATION
  Report Type: Spontaneous
  Country: EU (occurrence: EU)
  Receive Date: 20170504
  Receipt Date: 20251205
  Transmission Date: 20260117
  Serious: Yes (Other)
  Sender: MYLAN
  Company Number: None

PATIENT

DRUGS (8)
  1. LANSOPRAZOLE [Interacting]
     Active Substance: LANSOPRAZOLE
     Indication: Abdominal pain upper
     Dosage: 30 MILLIGRAM, QD
  2. LANSOPRAZOLE [Interacting]
     Active Substance: LANSOPRAZOLE
     Dosage: 30 MILLIGRAM, QD
     Route: 065
  3. LANSOPRAZOLE [Interacting]
     Active Substance: LANSOPRAZOLE
     Dosage: 30 MILLIGRAM, QD
     Route: 065
  4. LANSOPRAZOLE [Interacting]
     Active Substance: LANSOPRAZOLE
     Dosage: 30 MILLIGRAM, QD
  5. CEFTRIAXONE [Interacting]
     Active Substance: CEFTRIAXONE
     Indication: Pneumonia
     Dosage: 2 GRAM, QD
  6. CEFTRIAXONE [Interacting]
     Active Substance: CEFTRIAXONE
     Dosage: 2 GRAM, QD
     Route: 065
  7. CEFTRIAXONE [Interacting]
     Active Substance: CEFTRIAXONE
     Dosage: 2 GRAM, QD
     Route: 065
  8. CEFTRIAXONE [Interacting]
     Active Substance: CEFTRIAXONE
     Dosage: 2 GRAM, QD

REACTIONS (4)
  - Electrocardiogram QT prolonged [Recovered/Resolved]
  - Long QT syndrome [Recovered/Resolved]
  - Drug interaction [Recovered/Resolved]
  - Abdominal pain upper [Unknown]
